FAERS Safety Report 23707198 (Version 2)
Quarter: 2025Q1

REPORT INFORMATION
  Report Type: Spontaneous
  Country: US (occurrence: US)
  Receive Date: 20240404
  Receipt Date: 20250326
  Transmission Date: 20250408
  Serious: Yes (Hospitalization, Other)
  Sender: SANOFI AVENTIS
  Company Number: US-SA-SAC20240402001316

PATIENT
  Age: 60 Year
  Sex: Female

DRUGS (20)
  1. REZUROCK [Suspect]
     Active Substance: BELUMOSUDIL
     Indication: Chronic graft versus host disease
     Dosage: 200 MG, QD
     Route: 048
  2. BACLOFEN [Concomitant]
     Active Substance: BACLOFEN
  3. ADVAIR HFA [Concomitant]
     Active Substance: FLUTICASONE PROPIONATE\SALMETEROL XINAFOATE
  4. ACYCLOVIR [Concomitant]
     Active Substance: ACYCLOVIR
  5. AUGMENTIN [Concomitant]
     Active Substance: AMOXICILLIN\CLAVULANATE POTASSIUM
  6. ASPIRIN [Concomitant]
     Active Substance: ASPIRIN
  7. BACTRIM DS [Concomitant]
     Active Substance: SULFAMETHOXAZOLE\TRIMETHOPRIM
  8. CLONAZEPAM [Concomitant]
     Active Substance: CLONAZEPAM
  9. CALCIUM CARBONATE\CHOLECALCIFEROL [Concomitant]
     Active Substance: CALCIUM CARBONATE\CHOLECALCIFEROL
  10. ELIQUIS [Concomitant]
     Active Substance: APIXABAN
  11. LEVOTHYROXINE [Concomitant]
     Active Substance: LEVOTHYROXINE
  12. METOPROLOL TARTRATE [Concomitant]
     Active Substance: METOPROLOL TARTRATE
  13. MONTELUKAST [Concomitant]
     Active Substance: MONTELUKAST
  14. NITROFURANTOIN [Concomitant]
     Active Substance: NITROFURANTOIN
  15. VITAMINS NOS [Concomitant]
     Active Substance: VITAMINS
  16. PREDNISONE [Concomitant]
     Active Substance: PREDNISONE
  17. RITUXAN [Concomitant]
     Active Substance: RITUXIMAB
  18. TRAMADOL [Concomitant]
     Active Substance: TRAMADOL
  19. VILAZODONE [Concomitant]
     Active Substance: VILAZODONE
  20. VORICONAZOLE [Concomitant]
     Active Substance: VORICONAZOLE

REACTIONS (3)
  - Pneumonia [Recovering/Resolving]
  - Urinary tract infection [Recovering/Resolving]
  - Asthenia [Recovering/Resolving]
